FAERS Safety Report 7792469-X (Version None)
Quarter: 2011Q4

REPORT INFORMATION
  Report Type: 
  Country: None (occurrence: None)
  Receive Date: 20111003
  Receipt Date: 20110920
  Transmission Date: 20120403
  Serious: Yes (Other)
  Sender: FDA-Public Use
  Company Number: US-ELI_LILLY_AND_COMPANY-US201106000914

PATIENT
  Sex: Female

DRUGS (2)
  1. FORTEO [Suspect]
     Indication: OSTEOPOROSIS
     Dosage: 20 UG, QD
     Dates: start: 20110501, end: 20110601
  2. FORTEO [Suspect]
     Dosage: 20 UG, QD

REACTIONS (16)
  - MUSCULOSKELETAL PAIN [None]
  - MEMORY IMPAIRMENT [None]
  - HEART RATE INCREASED [None]
  - INTENTIONAL DRUG MISUSE [None]
  - NAUSEA [None]
  - VERTIGO [None]
  - DIZZINESS [None]
  - ARTHRALGIA [None]
  - DEPRESSION [None]
  - HEADACHE [None]
  - PULMONARY VALVE STENOSIS [None]
  - BONE PAIN [None]
  - BACK PAIN [None]
  - PAIN IN EXTREMITY [None]
  - PAIN [None]
  - DRUG DOSE OMISSION [None]
